FAERS Safety Report 16264164 (Version 1)
Quarter: 2019Q2

REPORT INFORMATION
  Report Type: Spontaneous
  Country: US (occurrence: US)
  Receive Date: 20190328
  Receipt Date: 20190328
  Transmission Date: 20190711
  Serious: No
  Sender: FDA-Public Use
  Company Number: None

PATIENT
  Age: 62 Year
  Sex: Female

DRUGS (1)
  1. STELARA [Suspect]
     Active Substance: USTEKINUMAB
     Dosage: INTRAVENOUS (NOT OTHERWISE SPECIFIED)??OTHER
     Route: 042
     Dates: start: 201802, end: 201903

REACTIONS (1)
  - Fatigue [None]

NARRATIVE: CASE EVENT DATE: 20190328
